FAERS Safety Report 8343766-0 (Version None)
Quarter: 2012Q2

REPORT INFORMATION
  Report Type: 
  Country: None (occurrence: None)
  Receive Date: 20120508
  Receipt Date: 20120430
  Transmission Date: 20120825
  Serious: Yes (Other)
  Sender: FDA-Public Use
  Company Number: US-BAYER-2011-084592

PATIENT
  Age: 43 Year
  Sex: Female

DRUGS (10)
  1. PROMETHAZINE [Concomitant]
     Dosage: 25 MG, PRN
     Dates: start: 20090617
  2. DROSPIRENONE AND ETHINYL ESTRADIOL [Suspect]
     Dosage: UNK
     Dates: start: 20090116
  3. HYDROCHLOROTHIAZIDE [Concomitant]
     Dosage: UNK
     Dates: start: 20090819
  4. LISINOPRIL [Concomitant]
     Dosage: 20 MG, PRN
     Dates: start: 20090819
  5. YASMIN [Suspect]
  6. POTASSIUM CHLORIDE [Concomitant]
     Dosage: UNK UNK, QD
     Dates: start: 20090617
  7. CIPROFLOXACIN HCL [Concomitant]
     Indication: URINARY TRACT INFECTION
     Dosage: 500 MG, TID
     Route: 048
     Dates: start: 20090625
  8. OMEPRAZOLE [Concomitant]
     Dosage: 200 MG, UNK
     Route: 048
     Dates: start: 20090625
  9. FLAGYL [Concomitant]
     Dosage: 500 MG, TID
     Route: 048
     Dates: start: 20090625
  10. CLARITIN [Concomitant]
     Dosage: UNK
     Dates: start: 20090819

REACTIONS (5)
  - CHOLELITHIASIS [None]
  - PULMONARY EMBOLISM [None]
  - CHOLECYSTITIS CHRONIC [None]
  - INJURY [None]
  - PAIN [None]
